FAERS Safety Report 7596224-5 (Version None)
Quarter: 2011Q3

REPORT INFORMATION
  Report Type: 
  Country: None (occurrence: None)
  Receive Date: 20110707
  Receipt Date: 20110628
  Transmission Date: 20111222
  Serious: Yes (Hospitalization)
  Sender: FDA-Public Use
  Company Number: KR-ABBOTT-11P-090-0835182-00

PATIENT
  Sex: Female

DRUGS (12)
  1. DIGOXIN [Concomitant]
  2. TRITACE [Concomitant]
     Indication: PRODUCT USED FOR UNKNOWN INDICATION
     Route: 048
  3. EPOKINE [Concomitant]
     Route: 058
  4. DIGOXIN [Concomitant]
     Indication: PRODUCT USED FOR UNKNOWN INDICATION
     Route: 042
  5. HERBAN 500 MG + NS 100 ML [Concomitant]
     Route: 048
  6. HERBAN 500 MG + NS 100 ML [Concomitant]
     Route: 042
  7. EPOKINE [Concomitant]
     Indication: PRODUCT USED FOR UNKNOWN INDICATION
     Route: 058
  8. ZEMPLAR [Suspect]
     Indication: BLOOD CALCIUM ABNORMAL
     Dosage: THREE TIMES A WEEK WHEN DIALYSIS
     Dates: start: 20091016
  9. TRITACE [Concomitant]
     Route: 048
  10. EPOKINE [Concomitant]
     Route: 058
  11. ZEMPLAR [Suspect]
  12. HERBAN 500 MG + NS 100 ML [Concomitant]
     Indication: PRODUCT USED FOR UNKNOWN INDICATION
     Route: 042

REACTIONS (1)
  - VAGINAL HAEMORRHAGE [None]
